FAERS Safety Report 4300145-0 (Version None)
Quarter: 2004Q1

REPORT INFORMATION
  Report Type: 
  Country: None (occurrence: None)
  Receive Date: 20040218
  Receipt Date: 20040210
  Transmission Date: 20041129
  Serious: Yes (Life-Threatening, Hospitalization)
  Sender: FDA-Public Use
  Company Number: F012004243

PATIENT
  Age: 65 Year
  Sex: Male

DRUGS (9)
  1. OXALIPLATIN [Suspect]
     Indication: COLORECTAL CANCER
     Dosage: 130 MG /M2 Q3W
     Route: 042
     Dates: start: 20040127, end: 20040127
  2. CAPECITABINE [Suspect]
     Dosage: 850 MG/M2 TWICE DAILY FROM D1 TO D15, Q3W
     Route: 048
     Dates: start: 20040127, end: 20040208
  3. AVASTIN [Suspect]
     Dosage: 7.5 MG/KG OVER 30-90 MINUTES IV INFUSION ON DAY 1 Q3WK
     Route: 042
     Dates: start: 20040127, end: 20040127
  4. ZOLPIDEM [Concomitant]
  5. PANTOPRAZOLE SODIUM [Concomitant]
  6. ACETAMINOPHEN [Concomitant]
  7. IBUPROFEN [Concomitant]
  8. TEMAZEPAM [Concomitant]
  9. MULTI-VITAMINS [Concomitant]

REACTIONS (11)
  - BLOOD PRESSURE DECREASED [None]
  - COLD SWEAT [None]
  - CYANOSIS [None]
  - DIARRHOEA [None]
  - DYSPNOEA [None]
  - HEART RATE IRREGULAR [None]
  - NEUTROPHIL COUNT INCREASED [None]
  - OXYGEN SATURATION DECREASED [None]
  - PCO2 DECREASED [None]
  - SEPSIS [None]
  - WHITE BLOOD CELL COUNT INCREASED [None]
